FAERS Safety Report 6771369-8 (Version None)
Quarter: 2010Q2

REPORT INFORMATION
  Report Type: 
  Country: None (occurrence: None)
  Receive Date: 20100616
  Receipt Date: 20100609
  Transmission Date: 20101027
  Serious: Yes (Life-Threatening, Hospitalization)
  Sender: FDA-Public Use
  Company Number: NL-SANOFI-AVENTIS-2010SA033153

PATIENT
  Age: 22 Year
  Sex: Female

DRUGS (3)
  1. FEXOFENADINE HCL [Suspect]
     Dates: start: 20100522, end: 20100523
  2. ORAL CONTRACEPTIVE NOS [Concomitant]
     Dates: start: 20060619
  3. ALL OTHER THERAPEUTIC PRODUCTS [Concomitant]
     Dates: start: 20100514

REACTIONS (1)
  - VENTRICULAR FIBRILLATION [None]
